FAERS Safety Report 15160831 (Version 1)
Quarter: 2018Q3

REPORT INFORMATION
  Report Type: Spontaneous
  Country: None (occurrence: US)
  Receive Date: 20180718
  Receipt Date: 20180718
  Transmission Date: 20181010
  Serious: No
  Sender: FDA-Public Use
  Company Number: US-TEIKOKU PHARMA USA-TPU2018-00403

PATIENT
  Sex: Male
  Weight: 68.1 kg

DRUGS (2)
  1. LIDOCAINE PATCH [Suspect]
     Active Substance: LIDOCAINE
     Indication: MUSCULOSKELETAL PAIN
     Dosage: TYPICALLY, 1 PATCH APPLIED TO LEFT THIGH, 1 PATCH ON RIGHT SHOULDER AND 1 PATCH ON RIGHT BACK AREA (
     Route: 061
     Dates: start: 2017
  2. LIDOCAINE PATCH [Suspect]
     Active Substance: LIDOCAINE
     Indication: HERPES ZOSTER
     Route: 061
     Dates: start: 201608, end: 2016

REACTIONS (1)
  - Incorrect drug administration duration [Unknown]
